FAERS Safety Report 16596630 (Version 3)
Quarter: 2019Q3

REPORT INFORMATION
  Report Type: Spontaneous
  Country: RO (occurrence: RO)
  Receive Date: 20190719
  Receipt Date: 20190802
  Transmission Date: 20191004
  Serious: Yes (Other)
  Sender: FDA-Public Use
  Company Number: RO-AUROBINDO-AUR-APL-2019-040375

PATIENT

DRUGS (2)
  1. OLANZAPINE. [Suspect]
     Active Substance: OLANZAPINE
     Indication: OBSESSIVE-COMPULSIVE DISORDER
  2. OLANZAPINE. [Suspect]
     Active Substance: OLANZAPINE
     Indication: SCHIZOPHRENIA
     Dosage: 10 MILLIGRAM (2 YEARS EARLIER)
     Route: 065

REACTIONS (10)
  - Anxiety [Recovered/Resolved]
  - Abulia [Not Recovered/Not Resolved]
  - Morbid thoughts [Not Recovered/Not Resolved]
  - Schizophrenia [Not Recovered/Not Resolved]
  - Social avoidant behaviour [Not Recovered/Not Resolved]
  - Poverty of thought content [Not Recovered/Not Resolved]
  - Drug ineffective [Unknown]
  - Obsessive thoughts [Recovering/Resolving]
  - Aggression [Not Recovered/Not Resolved]
  - Delusion [Recovering/Resolving]
